FAERS Safety Report 8524835-9 (Version None)
Quarter: 2012Q3

REPORT INFORMATION
  Report Type: 
  Country: None (occurrence: None)
  Receive Date: 20120720
  Receipt Date: 20120710
  Transmission Date: 20120928
  Serious: Yes (Hospitalization, Other)
  Sender: FDA-Public Use
  Company Number: US-MERCK-1112USA02415

PATIENT

DRUGS (3)
  1. FOSAMAX PLUS D [Suspect]
     Dosage: 70 MG, QW
     Dates: start: 20101116
  2. FOSAMAX [Suspect]
     Indication: OSTEOPOROSIS
     Dosage: UNK MG, UNK
     Route: 048
     Dates: start: 19991207, end: 20101116
  3. CALCIUM (UNSPECIFIED) [Concomitant]

REACTIONS (17)
  - UPPER RESPIRATORY TRACT INFECTION [None]
  - APPENDICECTOMY [None]
  - OSTEOPENIA [None]
  - GASTROOESOPHAGEAL REFLUX DISEASE [None]
  - RENAL FAILURE ACUTE [None]
  - CORONARY ARTERY BYPASS [None]
  - HYPERTENSION [None]
  - NEUROPATHY PERIPHERAL [None]
  - ANAEMIA POSTOPERATIVE [None]
  - TONSILLECTOMY [None]
  - FEMUR FRACTURE [None]
  - HYPERLIPIDAEMIA [None]
  - SPINAL COLUMN STENOSIS [None]
  - MYALGIA [None]
  - OSTEOARTHRITIS [None]
  - RIB FRACTURE [None]
  - DRUG INEFFECTIVE [None]
